FAERS Safety Report 23742519 (Version 1)
Quarter: 2024Q2

REPORT INFORMATION
  Report Type: Other
  Country: GB (occurrence: GB)
  Receive Date: 20240415
  Receipt Date: 20240415
  Transmission Date: 20240716
  Serious: Yes (Other)
  Sender: FDA-Public Use
  Company Number: None

PATIENT
  Age: 42 Year
  Sex: Female
  Weight: 106 kg

DRUGS (2)
  1. MIRABEGRON [Suspect]
     Active Substance: MIRABEGRON
     Indication: Urge incontinence
     Dosage: UNK UNK, UNKNOWN FREQ.
     Route: 065
     Dates: start: 20210101
  2. SOLIFENACIN [Concomitant]
     Active Substance: SOLIFENACIN
     Indication: Incontinence
     Dosage: UNK UNK, UNKNOWN FREQ.
     Route: 065
     Dates: start: 20210101

REACTIONS (1)
  - Gastric ulcer [Not Recovered/Not Resolved]

NARRATIVE: CASE EVENT DATE: 20230101
